FAERS Safety Report 20055018 (Version 1)
Quarter: 2021Q4

REPORT INFORMATION
  Report Type: Spontaneous
  Country: None (occurrence: A1)
  Receive Date: 20211110
  Receipt Date: 20211110
  Transmission Date: 20220303
  Serious: Yes (Hospitalization, Other)
  Sender: FDA-Public Use
  Company Number: A1-Avion Pharmaceuticals, LLC-2121704

PATIENT
  Age: 23 Year
  Sex: Female

DRUGS (1)
  1. GLOPERBA [Suspect]
     Active Substance: COLCHICINE
     Indication: Product used for unknown indication
     Route: 065

REACTIONS (21)
  - Abdominal pain [Unknown]
  - Diarrhoea [Unknown]
  - Chest discomfort [Unknown]
  - Dyspnoea [Unknown]
  - Nausea [Unknown]
  - Vomiting [Unknown]
  - Asthenia [Unknown]
  - Mental disorder [Unknown]
  - Mucosal erosion [Unknown]
  - Muscle tightness [Unknown]
  - Multiple organ dysfunction syndrome [Unknown]
  - Rhabdomyolysis [Unknown]
  - Myelosuppression [Unknown]
  - Pancreatitis acute [Unknown]
  - Ileus paralytic [Unknown]
  - Pneumonia [Unknown]
  - Atelectasis [Unknown]
  - Hypoxia [Unknown]
  - Metabolic acidosis [Unknown]
  - Congestive cardiomyopathy [Unknown]
  - Myocardial necrosis [Unknown]
